FAERS Safety Report 9033076 (Version 5)
Quarter: 2013Q4

REPORT INFORMATION
  Report Type: Report from Study
  Country: US (occurrence: US)
  Receive Date: 20130128
  Receipt Date: 20131014
  Transmission Date: 20140711
  Serious: Yes (Death, Hospitalization)
  Sender: FDA-Public Use
  Company Number: US-SANOFI-AVENTIS-2013SA004086

PATIENT
  Age: 62 Year
  Sex: Male
  Weight: 63 kg

DRUGS (20)
  1. ELOXATIN [Suspect]
     Indication: OESOPHAGEAL CANCER METASTATIC
     Route: 041
     Dates: start: 20120730, end: 20120730
  2. ELOXATIN [Suspect]
     Indication: OESOPHAGEAL CANCER METASTATIC
     Route: 041
     Dates: start: 20121221, end: 20121221
  3. LEUCOVORIN [Suspect]
     Indication: OESOPHAGEAL CANCER METASTATIC
     Route: 041
     Dates: start: 20120730, end: 20120730
  4. LEUCOVORIN [Suspect]
     Indication: OESOPHAGEAL CANCER METASTATIC
     Route: 041
     Dates: start: 20120905, end: 20120905
  5. LEUCOVORIN [Suspect]
     Indication: OESOPHAGEAL CANCER METASTATIC
     Route: 041
     Dates: start: 20121025, end: 20121025
  6. LEUCOVORIN [Suspect]
     Indication: OESOPHAGEAL CANCER METASTATIC
     Route: 041
     Dates: start: 20121107, end: 20121107
  7. LEUCOVORIN [Suspect]
     Indication: OESOPHAGEAL CANCER METASTATIC
     Route: 041
     Dates: start: 20121207, end: 20121207
  8. LEUCOVORIN [Suspect]
     Indication: OESOPHAGEAL CANCER METASTATIC
     Route: 041
     Dates: start: 20121221, end: 20121221
  9. 5-FU [Suspect]
     Indication: OESOPHAGEAL CANCER METASTATIC
     Dosage: 400 MG/M2  IV BOLUS FOLLOWED BY 2400 MG/M2 CONTINOUS IV FOR 46-48 HOURS A DAY.
     Route: 041
     Dates: start: 20120730, end: 20120730
  10. 5-FU [Suspect]
     Indication: OESOPHAGEAL CANCER METASTATIC
     Dosage: 400 MG/M2  IV BOLUS FOLLOWED BY 2400 MG/M2 CONTINOUS IV FOR 46-48 HOURS A DAY.
     Route: 041
     Dates: start: 20120821, end: 20120821
  11. 5-FU [Suspect]
     Indication: OESOPHAGEAL CANCER METASTATIC
     Dosage: 400 MG/M2  IV BOLUS FOLLOWED BY 2400 MG/M2 CONTINOUS IV FOR 46-48 HOURS A DAY.
     Route: 041
     Dates: start: 20121221, end: 20121221
  12. BLINDED THERAPY [Suspect]
     Indication: OESOPHAGEAL CANCER METASTATIC
     Route: 041
     Dates: start: 20120730, end: 20120730
  13. BLINDED THERAPY [Suspect]
     Indication: OESOPHAGEAL CANCER METASTATIC
     Route: 041
     Dates: start: 20121221, end: 20121221
  14. METOPROLOL [Concomitant]
  15. DEXAMETHASONE [Concomitant]
  16. LORAZEPAM [Concomitant]
  17. OXYCODONE [Concomitant]
  18. PROMETHAZINE [Concomitant]
  19. MULTIVITAMINS [Concomitant]
  20. METOCLOPRAMIDE [Concomitant]

REACTIONS (2)
  - Pleural effusion [Fatal]
  - Respiratory failure [Fatal]
